FAERS Safety Report 16029291 (Version 1)
Quarter: 2019Q2

REPORT INFORMATION
  Report Type: Spontaneous
  Country: US (occurrence: US)
  Receive Date: 20190302
  Receipt Date: 20190302
  Transmission Date: 20190711
  Serious: No
  Sender: FDA-Public Use
  Company Number: None

PATIENT
  Age: 45 Year
  Sex: Female
  Weight: 81 kg

DRUGS (1)
  1. HYDROXYCHLOR 200 MG [Suspect]
     Active Substance: HYDROXYCHLOROQUINE
     Indication: SYSTEMIC LUPUS ERYTHEMATOSUS
     Dosage: ?          QUANTITY:30 TABLET(S);?
     Route: 048
     Dates: start: 20180601, end: 20190301

REACTIONS (9)
  - Skin sensitisation [None]
  - Swollen tongue [None]
  - Visual impairment [None]
  - Eyelid disorder [None]
  - Skin irritation [None]
  - Contusion [None]
  - Lip pain [None]
  - Eye swelling [None]
  - Eyelids pruritus [None]

NARRATIVE: CASE EVENT DATE: 20190201
